FAERS Safety Report 8825921 (Version 1)
Quarter: 2012Q4

REPORT INFORMATION
  Report Type: 
  Country: DE (occurrence: DE)
  Receive Date: 20121005
  Receipt Date: 20121005
  Transmission Date: 20130627
  Serious: Yes (Other)
  Sender: FDA-Public Use
  Company Number: DE-EISAI INC-E7389-03010-SPO-DE

PATIENT
  Age: 74 Year
  Sex: Female
  Weight: 58 kg

DRUGS (2)
  1. HALAVEN [Suspect]
     Indication: METASTATIC BREAST CANCER
     Dosage: UNKNOWN
     Route: 041
     Dates: start: 20120823, end: 20120830
  2. NACL [Concomitant]
     Route: 042

REACTIONS (4)
  - Oedema [Unknown]
  - Protein total abnormal [None]
  - Asthenia [None]
  - Nausea [None]
